FAERS Safety Report 7435878-0 (Version None)
Quarter: 2011Q2

REPORT INFORMATION
  Report Type: 
  Country: None (occurrence: None)
  Receive Date: 20110418
  Receipt Date: 20110406
  Transmission Date: 20111010
  Serious: Yes (Life-Threatening, Other)
  Sender: FDA-Public Use
  Company Number: ALA_02168_2011

PATIENT
  Sex: Female

DRUGS (10)
  1. METOCLOPRAMIDE [Suspect]
     Indication: NAUSEA
     Dosage: PRN ORAL
     Route: 048
     Dates: start: 20110223, end: 20110224
  2. METOCLOPRAMIDE [Suspect]
     Indication: VOMITING
     Dosage: PRN ORAL
     Route: 048
     Dates: start: 20110223, end: 20110224
  3. NAPROXEN (ALEVE) [Concomitant]
  4. PENICILLIN [Suspect]
     Indication: TONSILLITIS
     Dosage: 500 MG, BID, ORAL
     Route: 048
     Dates: start: 20110223, end: 20110227
  5. ADVIL LIQUI-GELS [Concomitant]
  6. BLINDED STUDY DRUG [Suspect]
     Indication: DEPRESSION
     Dosage: 20, 40, 80, 40  MG QD, DF ORAL
     Route: 048
     Dates: start: 20100628, end: 20100629
  7. BLINDED STUDY DRUG [Suspect]
     Indication: DEPRESSION
     Dosage: 20, 40, 80, 40  MG QD, DF ORAL
     Route: 048
     Dates: start: 20100707, end: 20100708
  8. BLINDED STUDY DRUG [Suspect]
     Indication: DEPRESSION
     Dosage: 20, 40, 80, 40  MG QD, DF ORAL
     Route: 048
     Dates: start: 20100710, end: 20100906
  9. BLINDED STUDY DRUG [Suspect]
     Indication: DEPRESSION
     Dosage: 20, 40, 80, 40  MG QD, DF ORAL
     Route: 048
     Dates: start: 20100907, end: 20110218
  10. BLINDED STUDY DRUG [Suspect]
     Indication: DEPRESSION
     Dosage: 20, 40, 80, 40  MG QD, DF ORAL
     Route: 048
     Dates: start: 20100630, end: 20100706

REACTIONS (10)
  - ANAPHYLACTIC REACTION [None]
  - JOINT STIFFNESS [None]
  - DYSTONIA [None]
  - PHLEBITIS [None]
  - DRUG HYPERSENSITIVITY [None]
  - INJECTION SITE ERYTHEMA [None]
  - LOSS OF CONSCIOUSNESS [None]
  - DEEP VEIN THROMBOSIS [None]
  - INJECTION SITE HAEMATOMA [None]
  - INJECTION SITE PAIN [None]
